FAERS Safety Report 9394778 (Version 2)
Quarter: 2013Q3

REPORT INFORMATION
  Report Type: Report from Study
  Country: ES (occurrence: ES)
  Receive Date: 20130711
  Receipt Date: 20130723
  Transmission Date: 20140515
  Serious: Yes (Death, Hospitalization)
  Sender: FDA-Public Use
  Company Number: PHHO2013ES007095

PATIENT
  Age: 77 Year
  Sex: Female
  Weight: 45 kg

DRUGS (2)
  1. AFINITOR [Suspect]
     Indication: BREAST CANCER METASTATIC
     Dosage: 10 MG, BID
     Route: 048
     Dates: start: 20130322, end: 20130426
  2. EXEMESTANE [Suspect]
     Indication: BREAST CANCER METASTATIC
     Dosage: 25 MG, BID
     Route: 048
     Dates: start: 20130322, end: 20130426

REACTIONS (3)
  - Liver disorder [Fatal]
  - Hepatic pain [Recovered/Resolved]
  - Abdominal distension [Recovered/Resolved]
